FAERS Safety Report 7641200-7 (Version None)
Quarter: 2011Q3

REPORT INFORMATION
  Report Type: 
  Country: None (occurrence: None)
  Receive Date: 20110728
  Receipt Date: 20110718
  Transmission Date: 20111222
  Serious: Yes (Death, Other)
  Sender: FDA-Public Use
  Company Number: PHHY2011SE64968

PATIENT
  Age: 19 Year
  Sex: Female

DRUGS (16)
  1. ETHIONAMIDE [Concomitant]
     Indication: TUBERCULOSIS
     Dates: start: 19911201
  2. PYRAZINAMIDE [Concomitant]
     Indication: TUBERCULOSIS
     Dates: start: 19910401
  3. RIFAMPICIN [Concomitant]
     Indication: TUBERCULOSIS
     Dates: start: 19910401
  4. CYCLOSERINE [Concomitant]
     Indication: TUBERCULOSIS
  5. LEVOFLOXACIN [Concomitant]
     Indication: TUBERCULOSIS
  6. ISONIAZID [Concomitant]
     Indication: TUBERCULOSIS
     Dates: start: 19910401
  7. AMIKACIN [Concomitant]
     Indication: TUBERCULOSIS
  8. CIPROFLOXACIN [Concomitant]
     Indication: TUBERCULOSIS
     Dates: start: 19910701
  9. THIOACETAZONE [Concomitant]
     Indication: TUBERCULOSIS
  10. STREPTOMYCIN [Concomitant]
     Indication: TUBERCULOSIS
     Dosage: UNK
  11. PABA TAB [Concomitant]
     Indication: TUBERCULOSIS
  12. CLARITHROMYCIN [Concomitant]
     Indication: TUBERCULOSIS
  13. ETHAMBUTOL HYDROCHLORIDE [Concomitant]
     Indication: TUBERCULOSIS
  14. RIFABUTIN [Concomitant]
     Indication: TUBERCULOSIS
  15. CLOFAZIMINE [Suspect]
     Indication: TUBERCULOSIS
     Dates: start: 19911201
  16. PROTIONAMIDE [Concomitant]
     Indication: TUBERCULOSIS

REACTIONS (2)
  - TUBERCULOSIS [None]
  - DRUG RESISTANCE [None]
